FAERS Safety Report 21265033 (Version 1)
Quarter: 2022Q3

REPORT INFORMATION
  Report Type: Spontaneous
  Country: US (occurrence: None)
  Receive Date: 20220826
  Receipt Date: 20220826
  Transmission Date: 20221027
  Serious: Yes (Other)
  Sender: FDA-Public Use
  Company Number: None

PATIENT
  Age: 59 Year
  Sex: Female
  Weight: 51.3 kg

DRUGS (9)
  1. UBRELVY [Suspect]
     Active Substance: UBROGEPANT
     Indication: Migraine
     Dosage: OTHER QUANTITY : 1 TABLET(S);?FREQUENCY : AS NEEDED;?
     Route: 048
     Dates: start: 20220824, end: 20220824
  2. BUPROPION [Concomitant]
     Active Substance: BUPROPION
  3. SUMATRIPTAN [Concomitant]
     Active Substance: SUMATRIPTAN
  4. ACYCLOVIR [Concomitant]
     Active Substance: ACYCLOVIR
  5. LEVOTHYROXINE [Concomitant]
     Active Substance: LEVOTHYROXINE
  6. OMEGA 3 [Concomitant]
     Active Substance: CAPSAICIN
  7. Eves multivitamin [Concomitant]
  8. calcium magnesium [Concomitant]
  9. VITAMIN D [Concomitant]
     Active Substance: VITAMIN D NOS

REACTIONS (8)
  - Fatigue [None]
  - Nausea [None]
  - Feeding disorder [None]
  - Tremor [None]
  - Hypoaesthesia [None]
  - Skin laceration [None]
  - Drug ineffective [None]
  - Neuropathy peripheral [None]

NARRATIVE: CASE EVENT DATE: 20220824
